FAERS Safety Report 19577109 (Version 15)
Quarter: 2021Q3

REPORT INFORMATION
  Report Type: Report from Study
  Country: CN (occurrence: CN)
  Receive Date: 20210719
  Receipt Date: 20210914
  Transmission Date: 20211014
  Serious: Yes (Death, Life-Threatening, Hospitalization)
  Sender: FDA-Public Use
  Company Number: CN-EISAI MEDICAL RESEARCH-EC-2021-096222

PATIENT
  Age: 51 Year
  Sex: Male
  Weight: 63.5 kg

DRUGS (17)
  1. PEMETREXED. [Suspect]
     Active Substance: PEMETREXED
     Indication: NON-SMALL CELL LUNG CANCER METASTATIC
     Route: 041
     Dates: start: 20210615, end: 20210615
  2. GRANISETRON HYDROCHLORIDE. [Concomitant]
     Active Substance: GRANISETRON HYDROCHLORIDE
     Dates: start: 20210616, end: 20210620
  3. PALONOSETRON HYDROCHLORIDE. [Concomitant]
     Active Substance: PALONOSETRON HYDROCHLORIDE
     Route: 041
     Dates: start: 20210615, end: 20210616
  4. FOSAPREPITANT DIMEGLUMINE. [Concomitant]
     Active Substance: FOSAPREPITANT DIMEGLUMINE
     Route: 041
     Dates: start: 20210615, end: 20210615
  5. METOCLOPRAMIDE HYDROCHLORIDE. [Concomitant]
     Active Substance: METOCLOPRAMIDE HYDROCHLORIDE
     Route: 041
     Dates: start: 20210615, end: 20210616
  6. LENVATINIB [Suspect]
     Active Substance: LENVATINIB
     Indication: NON-SMALL CELL LUNG CANCER METASTATIC
     Route: 048
     Dates: start: 20210615, end: 20210709
  7. PEMETREXED. [Suspect]
     Active Substance: PEMETREXED
     Dosage: UNSPECIFIED DOSE REDUCTION
     Route: 041
     Dates: start: 20210708, end: 20210708
  8. TORSEMIDE. [Concomitant]
     Active Substance: TORSEMIDE
     Dates: start: 20210615, end: 20210616
  9. DIPHENHYDRAMINE HYDROCHLORIDE. [Concomitant]
     Active Substance: DIPHENHYDRAMINE HYDROCHLORIDE
     Route: 041
     Dates: start: 20210615, end: 20210616
  10. MAGNESIUM ISOGLYCYRRHIZINATE [Concomitant]
     Active Substance: MAGNESIUM ISOGLYCYRRHIZINATE
     Route: 041
     Dates: start: 20210615, end: 20210616
  11. OMEPRAZOLE SODIUM [Concomitant]
     Active Substance: OMEPRAZOLE SODIUM
     Dates: start: 20210615, end: 20210616
  12. CARBOPLATIN. [Suspect]
     Active Substance: CARBOPLATIN
     Indication: NON-SMALL CELL LUNG CANCER METASTATIC
     Dosage: AREA UNDER CURVE (AUC), 5 MG/ML/MIN
     Route: 041
     Dates: start: 20210615, end: 20210615
  13. DEXAMETHASONE ACETATE [Concomitant]
     Active Substance: DEXAMETHASONE ACETATE
     Dates: start: 20210614, end: 20210616
  14. PEMBROLIZUMAB. [Suspect]
     Active Substance: PEMBROLIZUMAB
     Indication: NON-SMALL CELL LUNG CANCER METASTATIC
     Route: 041
     Dates: start: 20210615, end: 20210615
  15. PEMBROLIZUMAB. [Suspect]
     Active Substance: PEMBROLIZUMAB
     Route: 041
     Dates: start: 20200708, end: 20210708
  16. FOLIC ACID. [Concomitant]
     Active Substance: FOLIC ACID
     Dates: start: 20210510, end: 20210725
  17. CARBOPLATIN. [Suspect]
     Active Substance: CARBOPLATIN
     Dosage: UNSPECIFIED DOSE REDUCTION
     Route: 041
     Dates: start: 20210708, end: 20210708

REACTIONS (6)
  - Gastrointestinal haemorrhage [Recovering/Resolving]
  - Platelet count decreased [Recovering/Resolving]
  - Sepsis [Fatal]
  - Febrile neutropenia [Recovering/Resolving]
  - Blood creatinine increased [Recovering/Resolving]
  - White blood cell count decreased [Recovering/Resolving]

NARRATIVE: CASE EVENT DATE: 20210625
